FAERS Safety Report 13039891 (Version 1)
Quarter: 2016Q4

REPORT INFORMATION
  Report Type: Spontaneous
  Country: US (occurrence: US)
  Receive Date: 20161219
  Receipt Date: 20161219
  Transmission Date: 20170207
  Serious: No
  Sender: FDA-Public Use
  Company Number: US-009507513-1612USA008505

PATIENT
  Sex: Female
  Weight: 48.5 kg

DRUGS (1)
  1. NUVARING [Suspect]
     Active Substance: ETHINYL ESTRADIOL\ETONOGESTREL
     Indication: CONTRACEPTION
     Dosage: 1 RING, 3 WEEKS IN 1 WEEK REMOVAL
     Route: 067
     Dates: start: 20161015

REACTIONS (4)
  - Product quality issue [Unknown]
  - Medical device site discomfort [Unknown]
  - Intentional medical device removal by patient [Unknown]
  - Device breakage [Unknown]

NARRATIVE: CASE EVENT DATE: 2016
